FAERS Safety Report 7468520-3 (Version None)
Quarter: 2011Q2

REPORT INFORMATION
  Report Type: 
  Country: None (occurrence: None)
  Receive Date: 20110509
  Receipt Date: 20110502
  Transmission Date: 20111010
  Serious: Yes (Other)
  Sender: FDA-Public Use
  Company Number: US-RB-026777-11

PATIENT
  Age: 66 Year
  Sex: Male

DRUGS (3)
  1. SUBOXONE [Suspect]
     Indication: PRODUCT USED FOR UNKNOWN INDICATION
     Dosage: DOSING INFORMATION UNKNOWN
     Route: 065
  2. FENTANYL-100 [Suspect]
     Route: 048
     Dates: start: 20110119, end: 20110119
  3. FENTANYL-100 [Suspect]
     Indication: PRODUCT USED FOR UNKNOWN INDICATION
     Route: 062

REACTIONS (3)
  - INTENTIONAL DRUG MISUSE [None]
  - CONVULSION [None]
  - DRUG ABUSE [None]
